FAERS Safety Report 11685148 (Version 1)
Quarter: 2015Q4

REPORT INFORMATION
  Report Type: Spontaneous
  Country: US (occurrence: None)
  Receive Date: 20151029
  Receipt Date: 20151029
  Transmission Date: 20160304
  Serious: No
  Sender: FDA-Public Use
  Company Number: None

PATIENT
  Age: 55 Year
  Sex: Male
  Weight: 75.3 kg

DRUGS (18)
  1. FOLIC ACID. [Concomitant]
     Active Substance: FOLIC ACID
  2. HARVONI [Suspect]
     Active Substance: LEDIPASVIR\SOFOSBUVIR
     Indication: HEPATITIS C
     Dosage: 1 PILL QD ORAL
     Route: 048
     Dates: start: 20150313, end: 20150324
  3. PRAVASTATIN [Concomitant]
     Active Substance: PRAVASTATIN\PRAVASTATIN SODIUM
  4. SILDENAFIL. [Concomitant]
     Active Substance: SILDENAFIL
  5. ATRIPLA [Concomitant]
     Active Substance: EFAVIRENZ\EMTRICITABINE\TENOFOVIR DISOPROXIL FUMARATE
  6. DARUNAVIR + RITONAVIR [Concomitant]
     Active Substance: DARUNAVIR\RITONAVIR
  7. ALBUTEROL. [Concomitant]
     Active Substance: ALBUTEROL
  8. FERROUS GLUCONATE [Concomitant]
     Active Substance: FERROUS GLUCONATE
  9. LACTULOSE. [Concomitant]
     Active Substance: LACTULOSE
  10. MORPHINE SULFATE. [Concomitant]
     Active Substance: MORPHINE SULFATE
  11. ASPIRIN. [Concomitant]
     Active Substance: ASPIRIN
  12. BUDESONIDE/FORMOTEROL [Concomitant]
     Active Substance: BUDESONIDE\FORMOTEROL
  13. MLUTIVITAMIN [Concomitant]
  14. OXYCODONE [Concomitant]
     Active Substance: OXYCODONE
  15. TRIAMCINOLONE [Concomitant]
     Active Substance: TRIAMCINOLONE
  16. DOCUSATES/SENNOSIDES [Concomitant]
  17. LOSARTAN. [Concomitant]
     Active Substance: LOSARTAN
  18. OMEPRAZOLE. [Concomitant]
     Active Substance: OMEPRAZOLE

REACTIONS (3)
  - Dysgeusia [None]
  - Lung disorder [None]
  - Headache [None]

NARRATIVE: CASE EVENT DATE: 20150314
